FAERS Safety Report 8713896 (Version 2)
Quarter: 2012Q4

REPORT INFORMATION
  Report Type: 
  Country: CO (occurrence: CO)
  Receive Date: 20120808
  Receipt Date: 20121102
  Transmission Date: 20130627
  Serious: Yes (Death, Hospitalization, Other)
  Sender: FDA-Public Use
  Company Number: CO-PFIZER INC-2009270636

PATIENT
  Age: 64 Year
  Sex: Male

DRUGS (12)
  1. LIPITOR [Suspect]
     Indication: HYPERTENSION
     Dosage: 10 mg, 1x/day
     Route: 048
     Dates: start: 20070303
  2. LIPITOR [Suspect]
     Indication: DIABETES
  3. OLMETEC HCT [Suspect]
     Indication: HYPERTENSION
     Dosage: [olmesartan medoxomil 20 mg/ hydrochlorothiazide 12.5], 1x/day
     Route: 048
     Dates: start: 20070303
  4. OLMETEC HCT [Suspect]
     Indication: DIABETES
  5. NORVAS [Suspect]
     Indication: HYPERTENSION
     Dosage: 10 mg, 1x/day
     Route: 048
     Dates: start: 20070303
  6. NORVAS [Suspect]
     Indication: DIABETES
     Dosage: 5 mg, 1x/day
  7. ACURETIC [Suspect]
     Indication: HYPERTENSION
     Dosage: [quinapril HCl 20 mg]/ [hydrochlorothiazide 12.5 mg], 1x/day
  8. GLIBENCLAMIDE [Concomitant]
     Dosage: 5 mg, 1x/day
     Route: 048
  9. GLIBENCLAMIDE [Concomitant]
     Dosage: 5 mg, 2x/day
  10. METFORMIN [Concomitant]
     Dosage: 850 mg, 2x/day
  11. METOPROLOL TARTRATE [Concomitant]
     Dosage: 100 mg, 3x/day
  12. INSULIN ZINC SUSPENSION [Concomitant]
     Dosage: 15 DF, 1x/day

REACTIONS (9)
  - Death [Fatal]
  - Diabetes mellitus inadequate control [Recovering/Resolving]
  - Anaemia [Recovering/Resolving]
  - Gastrointestinal fistula [Unknown]
  - Diarrhoea [Recovering/Resolving]
  - Dyspnoea [Unknown]
  - Chest pain [Unknown]
  - Oedema peripheral [Unknown]
  - Exercise lack of [Unknown]
